FAERS Safety Report 10230493 (Version 1)
Quarter: 2014Q2

REPORT INFORMATION
  Report Type: Spontaneous
  Country: US (occurrence: US)
  Receive Date: 20140611
  Receipt Date: 20140611
  Transmission Date: 20141212
  Serious: No
  Sender: FDA-Public Use
  Company Number: US-INCYTE CORPORATION-2014IN000985

PATIENT
  Age: 69 Year
  Sex: Male

DRUGS (3)
  1. JAKAFI [Suspect]
     Indication: MYELOFIBROSIS
     Dosage: 5 MG, BID
     Route: 048
     Dates: start: 20140324
  2. PROCHLORPERAZINE [Concomitant]
  3. CIPRO                              /00697201/ [Concomitant]

REACTIONS (2)
  - Haemorrhoids [Not Recovered/Not Resolved]
  - Urine output increased [Not Recovered/Not Resolved]
